FAERS Safety Report 7381537-2 (Version None)
Quarter: 2011Q1

REPORT INFORMATION
  Report Type: 
  Country: None (occurrence: None)
  Receive Date: 20110329
  Receipt Date: 20110324
  Transmission Date: 20110831
  Serious: Yes (Hospitalization, Other)
  Sender: FDA-Public Use
  Company Number: CA-ABBOTT-06P-028-0352718-00

PATIENT
  Sex: Female
  Weight: 63.56 kg

DRUGS (8)
  1. METHOTREXATE [Concomitant]
     Indication: RHEUMATOID ARTHRITIS
     Route: 048
     Dates: start: 19950101
  2. NAPROXEN [Concomitant]
     Indication: RHEUMATOID ARTHRITIS
     Route: 048
     Dates: start: 20050101
  3. PERI/POST SURGICAL RX FOR ANESTHESIA, PAIN [Concomitant]
     Indication: PRODUCT USED FOR UNKNOWN INDICATION
  4. AVAPRO [Concomitant]
     Indication: HYPERTENSION
     Route: 048
     Dates: start: 20030101
  5. NAPROXEN [Concomitant]
     Indication: INFLAMMATION
  6. PRILOSEC [Concomitant]
     Indication: PROPHYLAXIS
     Route: 048
     Dates: start: 20030101
  7. PREDNISONE [Concomitant]
     Indication: RHEUMATOID ARTHRITIS
     Dosage: 5MG DAILY
     Route: 048
  8. HUMIRA [Suspect]
     Indication: RHEUMATOID ARTHRITIS
     Route: 058
     Dates: start: 20060811, end: 20110201

REACTIONS (2)
  - SPINAL FUSION SURGERY [None]
  - ABSCESS [None]
